FAERS Safety Report 12396400 (Version 1)
Quarter: 2016Q2

REPORT INFORMATION
  Report Type: Spontaneous
  Country: US (occurrence: US)
  Receive Date: 20160524
  Receipt Date: 20160524
  Transmission Date: 20160815
  Serious: Yes (Hospitalization, Other)
  Sender: FDA-Public Use
  Company Number: US-AMGEN-USASP2016065261

PATIENT
  Age: 64 Year
  Sex: Female

DRUGS (2)
  1. ENBREL [Suspect]
     Active Substance: ETANERCEPT
     Indication: RHEUMATOID ARTHRITIS
     Dosage: 50 MG, QWK
     Route: 065
  2. HUMIRA [Concomitant]
     Active Substance: ADALIMUMAB
     Dosage: UNK UNK, QMO

REACTIONS (7)
  - Burn infection [Unknown]
  - Thermal burn [Unknown]
  - Staphylococcal sepsis [Unknown]
  - Joint injury [Not Recovered/Not Resolved]
  - Localised infection [Unknown]
  - Gait disturbance [Unknown]
  - Infection [Unknown]

NARRATIVE: CASE EVENT DATE: 2009
